FAERS Safety Report 18554006 (Version 1)
Quarter: 2020Q4

REPORT INFORMATION
  Report Type: Spontaneous
  Country: CA (occurrence: CA)
  Receive Date: 20201127
  Receipt Date: 20201127
  Transmission Date: 20210114
  Serious: Yes (Other)
  Sender: FDA-Public Use
  Company Number: CA-PFIZER INC-2020460785

PATIENT
  Age: 35 Year
  Sex: Male

DRUGS (3)
  1. INFLECTRA [Concomitant]
     Active Substance: INFLIXIMAB-DYYB
     Indication: CROHN^S DISEASE
     Dosage: 10 MG/KG, CYCLIC, (EVERY 2,6 WEEKS, THEN EVERY 6 WEEKS)
     Route: 042
     Dates: start: 202011, end: 20201112
  2. SOLU-MEDROL [Suspect]
     Active Substance: METHYLPREDNISOLONE SODIUM SUCCINATE
     Dosage: UNK
     Dates: start: 20201104
  3. DILAUDID [Concomitant]
     Active Substance: HYDROMORPHONE HYDROCHLORIDE
     Dosage: UNK

REACTIONS (10)
  - Defaecation urgency [Unknown]
  - Abdominal pain lower [Unknown]
  - Faeces discoloured [Unknown]
  - Gastrointestinal pain [Unknown]
  - Bloody discharge [Recovering/Resolving]
  - Mucous stools [Unknown]
  - Condition aggravated [Unknown]
  - Proctalgia [Unknown]
  - Rectal haemorrhage [Unknown]
  - Pain [Not Recovered/Not Resolved]

NARRATIVE: CASE EVENT DATE: 202011
